FAERS Safety Report 21138440 (Version 1)
Quarter: 2022Q3

REPORT INFORMATION
  Report Type: Spontaneous
  Country: US (occurrence: US)
  Receive Date: 20220727
  Receipt Date: 20220727
  Transmission Date: 20221027
  Serious: Yes (Other)
  Sender: FDA-Public Use
  Company Number: US-TEVA-2022-US-2059183

PATIENT
  Age: 64 Year
  Sex: Female

DRUGS (1)
  1. ACYCLOVIR [Suspect]
     Active Substance: ACYCLOVIR
     Indication: Genital herpes
     Dosage: 400 MILLIGRAM DAILY;
     Route: 065
     Dates: start: 1976

REACTIONS (2)
  - Gallbladder operation [Unknown]
  - Expired product administered [Unknown]
